FAERS Safety Report 7848662-0 (Version None)
Quarter: 2011Q4

REPORT INFORMATION
  Report Type: 
  Country: None (occurrence: None)
  Receive Date: 20111026
  Receipt Date: 20111017
  Transmission Date: 20120403
  Serious: Yes (Other)
  Sender: FDA-Public Use
  Company Number: US-BIOGENIDEC-2011BI033754

PATIENT
  Age: 41 Year
  Sex: Female

DRUGS (2)
  1. KLONOPIN [Concomitant]
  2. AVONEX [Suspect]
     Indication: MULTIPLE SCLEROSIS
     Route: 030
     Dates: start: 20030507

REACTIONS (1)
  - DRUG WITHDRAWAL CONVULSIONS [None]
